FAERS Safety Report 9486672 (Version 4)
Quarter: 2013Q4

REPORT INFORMATION
  Report Type: Spontaneous
  Country: FR (occurrence: FR)
  Receive Date: 20130829
  Receipt Date: 20131226
  Transmission Date: 20140711
  Serious: Yes (Hospitalization, Other)
  Sender: FDA-Public Use
  Company Number: FR-PFIZER INC-2013247917

PATIENT
  Age: 66 Year
  Sex: Female

DRUGS (7)
  1. ORELOX [Suspect]
     Dosage: 100 MG, SINGLE
     Route: 048
     Dates: start: 20130607, end: 20130607
  2. ROCEPHINE [Suspect]
     Dosage: 1 G, DAILY
     Route: 042
     Dates: start: 20130607, end: 20130608
  3. LIPANTHYL [Concomitant]
     Dosage: UNK
  4. COTAREG [Concomitant]
     Dosage: UNK
  5. SERETIDE [Concomitant]
     Dosage: UNK
  6. VENTOLINE [Concomitant]
     Dosage: UNK
  7. STILNOX [Concomitant]
     Dosage: UNK

REACTIONS (1)
  - Drug reaction with eosinophilia and systemic symptoms [Recovered/Resolved]
